FAERS Safety Report 17782774 (Version 1)
Quarter: 2020Q2

REPORT INFORMATION
  Report Type: Spontaneous
  Country: US (occurrence: US)
  Receive Date: 20200513
  Receipt Date: 20200513
  Transmission Date: 20200714
  Serious: Yes (Death, Hospitalization)
  Sender: FDA-Public Use
  Company Number: None

PATIENT
  Age: 1 Year
  Sex: Male

DRUGS (23)
  1. SILDENAFIL. [Concomitant]
     Active Substance: SILDENAFIL
  2. FERROUS SULFATE. [Concomitant]
     Active Substance: FERROUS SULFATE
  3. OMEPRAZOLE. [Concomitant]
     Active Substance: OMEPRAZOLE
  4. MONTELUKAST [Concomitant]
     Active Substance: MONTELUKAST SODIUM
  5. SPIRONOLACTONE/HYDROCHLOTHIAZIDE [Concomitant]
  6. ACETAMINOPHEN. [Concomitant]
     Active Substance: ACETAMINOPHEN
  7. OMEPRAZOLE. [Concomitant]
     Active Substance: OMEPRAZOLE
  8. MELATONIN [Concomitant]
     Active Substance: MELATONIN
  9. TOBI NEB SOLN [Concomitant]
  10. OMEPRAZOLE. [Concomitant]
     Active Substance: OMEPRAZOLE
  11. TOBRAYMCIN NEB SOLN [Concomitant]
  12. FUROSEMIDE. [Concomitant]
     Active Substance: FUROSEMIDE
  13. DIGOXIN. [Concomitant]
     Active Substance: DIGOXIN
  14. FERROUS SULFATE. [Concomitant]
     Active Substance: FERROUS SULFATE
  15. IPRATROPIUM INHL SOLN [Concomitant]
  16. CLONIDINE. [Concomitant]
     Active Substance: CLONIDINE
  17. AMBRISENTAN 5MG TABLETS 30/BO: 5MG [Suspect]
     Active Substance: AMBRISENTAN
     Indication: HEART DISEASE CONGENITAL
     Route: 048
     Dates: start: 201909, end: 202005
  18. PREDNISOLONE. [Concomitant]
     Active Substance: PREDNISOLONE
  19. POTASSIUM CHLORIDE. [Concomitant]
     Active Substance: POTASSIUM CHLORIDE
  20. PULMICORT TURBUHALER [Concomitant]
     Active Substance: BUDESONIDE
  21. REMODULIN [Concomitant]
     Active Substance: TREPROSTINIL
  22. CHLOROTHIAZIDE. [Concomitant]
     Active Substance: CHLOROTHIAZIDE
  23. CYPROHEPTADINE. [Concomitant]
     Active Substance: CYPROHEPTADINE

REACTIONS (6)
  - Respiratory distress [None]
  - Acute kidney injury [None]
  - Hypoxia [None]
  - Hospice care [None]
  - Fluid overload [None]
  - Respiratory failure [None]

NARRATIVE: CASE EVENT DATE: 20200428
